FAERS Safety Report 7560001-1 (Version None)
Quarter: 2011Q2

REPORT INFORMATION
  Report Type: 
  Country: None (occurrence: None)
  Receive Date: 20110621
  Receipt Date: 20110608
  Transmission Date: 20111010
  Serious: Yes (Other)
  Sender: FDA-Public Use
  Company Number: PHHY2010CA86853

PATIENT
  Sex: Female

DRUGS (3)
  1. SANDOSTATIN [Suspect]
     Indication: NEUROENDOCRINE TUMOUR
     Dosage: 1 ML, TID
     Route: 058
     Dates: start: 20100401
  2. SANDOSTATIN [Suspect]
     Dosage: 1.5 ML, TID
     Route: 058
  3. SANDOSTATIN [Suspect]
     Indication: NEUROENDOCRINE TUMOUR
     Dosage: 40 MG, EVERY FOUR WEEKS
     Route: 030
     Dates: start: 20101220

REACTIONS (5)
  - NEOPLASM MALIGNANT [None]
  - MALAISE [None]
  - PAIN [None]
  - ABDOMINAL DISTENSION [None]
  - ABDOMINAL PAIN [None]
